FAERS Safety Report 13151204 (Version 1)
Quarter: 2017Q1

REPORT INFORMATION
  Report Type: Spontaneous
  Country: JP (occurrence: JP)
  Receive Date: 20170125
  Receipt Date: 20170125
  Transmission Date: 20170428
  Serious: Yes (Other)
  Sender: FDA-Public Use
  Company Number: JP-JNJFOC-20170103538

PATIENT
  Age: 83 Year
  Sex: Male

DRUGS (6)
  1. REMINYL [Suspect]
     Active Substance: GALANTAMINE
     Indication: DEMENTIA
     Dosage: MORNING4MG,EVENING8??MG
     Route: 048
     Dates: start: 201610, end: 20170111
  2. REMINYL [Suspect]
     Active Substance: GALANTAMINE
     Indication: DEMENTIA
     Route: 048
     Dates: start: 201609, end: 201610
  3. BETANIS [Suspect]
     Active Substance: MIRABEGRON
     Indication: HYPERTONIC BLADDER
     Route: 048
  4. FLIVAS [Suspect]
     Active Substance: NAFTOPIDIL
     Indication: BENIGN PROSTATIC HYPERPLASIA
     Route: 048
  5. REMINYL [Suspect]
     Active Substance: GALANTAMINE
     Indication: DEMENTIA
     Route: 048
     Dates: start: 20160609, end: 201607
  6. REMINYL [Suspect]
     Active Substance: GALANTAMINE
     Indication: DEMENTIA
     Dosage: MORNING 4 MG, EVENING 8 MG
     Route: 048
     Dates: start: 201607, end: 201609

REACTIONS (2)
  - Pneumonia aspiration [Not Recovered/Not Resolved]
  - Hepatic function abnormal [Unknown]

NARRATIVE: CASE EVENT DATE: 2016
